FAERS Safety Report 18677832 (Version 1)
Quarter: 2020Q4

REPORT INFORMATION
  Report Type: Spontaneous
  Country: US (occurrence: US)
  Receive Date: 20201229
  Receipt Date: 20201229
  Transmission Date: 20210114
  Serious: No
  Sender: FDA-Public Use
  Company Number: US-PFIZER INC-2020508691

PATIENT
  Age: 76 Year
  Sex: Male
  Weight: 112.94 kg

DRUGS (1)
  1. INLYTA [Suspect]
     Active Substance: AXITINIB
     Indication: RENAL CANCER
     Dosage: 5 MG, DAILY
     Route: 048
     Dates: start: 2020, end: 202012

REACTIONS (5)
  - Condition aggravated [Recovering/Resolving]
  - Oral pain [Recovering/Resolving]
  - Feeding disorder [Unknown]
  - Dysstasia [Unknown]
  - Body height decreased [Unknown]

NARRATIVE: CASE EVENT DATE: 2020
